FAERS Safety Report 8492456-2 (Version None)
Quarter: 2012Q3

REPORT INFORMATION
  Report Type: 
  Country: None (occurrence: None)
  Receive Date: 20120706
  Receipt Date: 20120622
  Transmission Date: 20120928
  Serious: Yes (Other)
  Sender: FDA-Public Use
  Company Number: JP-ROCHE-1074565

PATIENT
  Age: 69 Year
  Sex: Male

DRUGS (2)
  1. XELODA [Suspect]
     Indication: COLON CANCER METASTATIC
     Dosage: DOSAGE IS UNCERTAIN.
     Route: 048
     Dates: start: 20101101
  2. OXALIPLATIN [Suspect]
     Indication: COLON CANCER METASTATIC
     Dosage: DOSAGE IS UNCERTAIN.
     Route: 041
     Dates: start: 20101101

REACTIONS (2)
  - COLON CANCER METASTATIC [None]
  - HEPATIC FUNCTION ABNORMAL [None]
